FAERS Safety Report 9591166 (Version 1)
Quarter: 2013Q4

REPORT INFORMATION
  Report Type: Spontaneous
  Country: US (occurrence: US)
  Receive Date: 20131003
  Receipt Date: 20131003
  Transmission Date: 20140711
  Serious: No
  Sender: FDA-Public Use
  Company Number: US-AMGEN-USASP2012075955

PATIENT
  Age: 58 Year
  Sex: Female

DRUGS (8)
  1. ENBREL [Suspect]
     Indication: RHEUMATOID ARTHRITIS
     Dosage: 50 MG, QWK
     Route: 058
  2. VITAMIN E                          /00110501/ [Concomitant]
     Dosage: 1000 UNIT, UNK
     Route: 048
  3. PROZAC [Concomitant]
     Dosage: 10 MG, UNK
     Route: 048
  4. IBUPROFEN [Concomitant]
     Dosage: 200 MG, UNK
     Route: 048
  5. VITAMIN D                          /00107901/ [Concomitant]
     Dosage: 1000 UNIT, UNK
  6. FOLIC ACID [Concomitant]
     Dosage: UNK
     Route: 048
  7. B COMPLEX                          /00212701/ [Concomitant]
     Dosage: UNK
     Route: 048
  8. BABY ASPIRIN [Concomitant]
     Dosage: 81 MG, UNK
     Route: 048

REACTIONS (1)
  - Nodule [Unknown]
